FAERS Safety Report 9038787 (Version 1)
Quarter: 2013Q1

REPORT INFORMATION
  Report Type: Spontaneous
  Country: US (occurrence: None)
  Receive Date: 20130122
  Receipt Date: 20130122
  Transmission Date: 20140127
  Serious: Yes (Life-Threatening, Hospitalization, Disabling)
  Sender: FDA-Public Use
  Company Number: None

PATIENT
  Age: 64 Year
  Sex: Male

DRUGS (1)
  1. ORENCIA [Suspect]
     Dosage: 125 MG SUBCUTANEOUSLY ONCE WEEKLY
     Route: 058

REACTIONS (2)
  - Osteomyelitis [None]
  - Leg amputation [None]
